FAERS Safety Report 6736780-X (Version None)
Quarter: 2010Q2

REPORT INFORMATION
  Report Type: 
  Country: None (occurrence: None)
  Receive Date: 20100521
  Receipt Date: 20100510
  Transmission Date: 20101027
  Serious: Yes (Other)
  Sender: FDA-Public Use
  Company Number: CO-ELI_LILLY_AND_COMPANY-CO201005002703

PATIENT
  Age: 58 Year
  Sex: Male

DRUGS (12)
  1. FORTEO [Suspect]
     Indication: OSTEOPOROSIS
     Dosage: 20 UG, DAILY (1/D)
     Route: 058
     Dates: start: 20091231, end: 20100401
  2. OMEPRAZOLE [Concomitant]
  3. ENALAPRIL MALEATE [Concomitant]
  4. FUROSEMIDE [Concomitant]
  5. SPIRONOLACTONE [Concomitant]
  6. CALCITRIOL [Concomitant]
  7. ZOLPIDEM [Concomitant]
  8. ACETAMINOPHEN [Concomitant]
  9. CALCITONIN [Concomitant]
  10. GLUCOSAMINE [Concomitant]
  11. PIROXICAM [Concomitant]
  12. TAMSULOSIN HYDROCHLORIDE [Concomitant]

REACTIONS (1)
  - HEPATIC NEOPLASM MALIGNANT [None]
